FAERS Safety Report 4790284-2 (Version None)
Quarter: 2005Q4

REPORT INFORMATION
  Report Type: 
  Country: None (occurrence: None)
  Receive Date: 20051005
  Receipt Date: 20051005
  Transmission Date: 20060501
  Serious: Yes (Life-Threatening, Hospitalization)
  Sender: FDA-Public Use
  Company Number: None

PATIENT
  Age: 53 Year
  Sex: Male
  Weight: 94 kg

DRUGS (8)
  1. PENTOBARBITAL SOD INJ [Suspect]
     Indication: STATUS EPILEPTICUS
     Dosage: 3-4 MCG 1KG 1 MIN IV
     Route: 042
  2. CEFEPIME [Concomitant]
  3. GANCICLOVIR [Concomitant]
  4. VALPROIC ACID [Concomitant]
  5. LEVETIRACETAM [Concomitant]
  6. PROPOFOL [Concomitant]
  7. NOREPINEPHRINE [Concomitant]
  8. VASOPRESSIN [Concomitant]

REACTIONS (4)
  - BLOOD BICARBONATE INCREASED [None]
  - BLOOD PH DECREASED [None]
  - BLOOD PH INCREASED [None]
  - METABOLIC ACIDOSIS [None]
